FAERS Safety Report 4525591-1 (Version None)
Quarter: 2004Q4

REPORT INFORMATION
  Report Type: 
  Country: None (occurrence: None)
  Receive Date: 20041116
  Receipt Date: 20040921
  Transmission Date: 20050328
  Serious: No
  Sender: FDA-Public Use
  Company Number: S04-USA-06190-01

PATIENT
  Age: 84 Year
  Sex: Female

DRUGS (6)
  1. NAMENDA [Suspect]
     Indication: DEMENTIA
     Dosage: 5 MG QD PO
     Route: 048
     Dates: start: 20040920
  2. LIPITOR [Concomitant]
  3. SYNTHROID [Concomitant]
  4. BUSPAR [Concomitant]
  5. DETROL [Concomitant]
  6. SENSIPAR [Concomitant]

REACTIONS (1)
  - EPISTAXIS [None]
